FAERS Safety Report 7562964-7 (Version None)
Quarter: 2011Q2

REPORT INFORMATION
  Report Type: 
  Country: None (occurrence: None)
  Receive Date: 20110621
  Receipt Date: 20110621
  Transmission Date: 20111010
  Serious: Yes (Death, Hospitalization)
  Sender: FDA-Public Use
  Company Number: None

PATIENT
  Sex: Male
  Weight: 88.9 kg

DRUGS (4)
  1. LEUCOVORIN CALCIUM [Suspect]
     Dosage: 3364 MG
     Dates: end: 20110606
  2. FLUOROURACIL [Suspect]
     Dosage: 23530 MG
     Dates: end: 20110606
  3. BEVACIZUMAB (RHUMAB VEGF) [Suspect]
     Dosage: 1781 MG
     Dates: end: 20110606
  4. OXALIPLATIN (ELOXATIN) [Suspect]
     Dosage: 545 MG
     Dates: end: 20110606

REACTIONS (2)
  - DYSPEPSIA [None]
  - MALAISE [None]
